FAERS Safety Report 4466357-0 (Version None)
Quarter: 2004Q4

REPORT INFORMATION
  Report Type: 
  Country: None (occurrence: None)
  Receive Date: 20041005
  Receipt Date: 20040923
  Transmission Date: 20050328
  Serious: Yes (Hospitalization)
  Sender: FDA-Public Use
  Company Number: FR-BRISTOL-MYERS SQUIBB COMPANY-12709911

PATIENT
  Age: 88 Year
  Sex: Female

DRUGS (3)
  1. AMIKLIN POWDER [Suspect]
     Indication: PSEUDOMONAS INFECTION
     Route: 058
     Dates: start: 20040823, end: 20040826
  2. OFLOCET [Suspect]
     Indication: PSEUDOMONAS INFECTION
     Route: 042
     Dates: start: 20040810, end: 20040826
  3. AUGMENTIN '250' [Suspect]
     Route: 048
     Dates: start: 20040811, end: 20040823

REACTIONS (1)
  - CLOSTRIDIUM COLITIS [None]
